FAERS Safety Report 4693823-5 (Version None)
Quarter: 2005Q2

REPORT INFORMATION
  Report Type: 
  Country: None (occurrence: None)
  Receive Date: 20050616
  Receipt Date: 20050606
  Transmission Date: 20051028
  Serious: Yes (Hospitalization, Other)
  Sender: FDA-Public Use
  Company Number: ES-2005-005985

PATIENT
  Age: 45 Year
  Sex: Female

DRUGS (3)
  1. MIRENA [Suspect]
     Indication: METRORRHAGIA
     Dosage: 20 UG/DAY,CONT,INTRA-UTERINE
     Route: 015
     Dates: start: 20050306, end: 20050314
  2. LEVOTHROID [Concomitant]
  3. ADRENALINE [Concomitant]

REACTIONS (4)
  - CHEST PAIN [None]
  - HYPERTENSION [None]
  - PALPITATIONS [None]
  - TACHYCARDIA [None]
